FAERS Safety Report 8560780-0 (Version None)
Quarter: 2012Q3

REPORT INFORMATION
  Report Type: 
  Country: None (occurrence: None)
  Receive Date: 20120802
  Receipt Date: 20120730
  Transmission Date: 20120928
  Serious: No
  Sender: FDA-Public Use
  Company Number: US-PFIZER INC-2012165697

PATIENT
  Sex: Male
  Weight: 87.36 kg

DRUGS (4)
  1. ZOCOR [Suspect]
     Dosage: UNK
  2. LIPITOR [Suspect]
     Dosage: UNK
     Dates: end: 20080801
  3. CRESTOR [Suspect]
     Dosage: UNK
  4. TRICOR [Suspect]
     Dosage: UNK

REACTIONS (1)
  - HYPERSENSITIVITY [None]
